FAERS Safety Report 9657661 (Version 1)
Quarter: 2013Q4

REPORT INFORMATION
  Report Type: Spontaneous
  Country: US (occurrence: US)
  Receive Date: 20131030
  Receipt Date: 20131030
  Transmission Date: 20140711
  Serious: Yes (Other)
  Sender: FDA-Public Use
  Company Number: US-BAYER-2013-129184

PATIENT
  Age: 89 Year
  Sex: Female

DRUGS (2)
  1. PHILLIPS^ MILK OF MAGNESIA [Suspect]
     Indication: CONSTIPATION
     Dosage: 1 TBSP, PRN
     Route: 048
  2. PHILLIPS^ LAXATIVE DIETARY SUPPLEMENT [Suspect]
     Route: 048

REACTIONS (4)
  - Foreign body aspiration [Recovered/Resolved]
  - Non-cardiac chest pain [Recovered/Resolved]
  - Dysphagia [None]
  - Diarrhoea [Recovered/Resolved]
